FAERS Safety Report 6414869-2 (Version None)
Quarter: 2009Q4

REPORT INFORMATION
  Report Type: 
  Country: None (occurrence: None)
  Receive Date: 20091026
  Receipt Date: 20081124
  Transmission Date: 20100525
  Serious: No
  Sender: FDA-Public Use
  Company Number: US-ABBOTT-08P-163-0489777-00

PATIENT
  Sex: Female

DRUGS (1)
  1. LUPRON DEPOT [Suspect]
     Indication: ENDOMETRIOSIS
     Route: 058
     Dates: start: 20081021

REACTIONS (4)
  - ADNEXA UTERI PAIN [None]
  - BACK PAIN [None]
  - DYSMENORRHOEA [None]
  - MENORRHAGIA [None]
